FAERS Safety Report 6179659-7 (Version None)
Quarter: 2009Q2

REPORT INFORMATION
  Report Type: 
  Country: None (occurrence: None)
  Receive Date: 20090505
  Receipt Date: 20090424
  Transmission Date: 20091009
  Serious: Yes (Other)
  Sender: FDA-Public Use
  Company Number: PHHY2009JP14856

PATIENT

DRUGS (3)
  1. COMTAN [Suspect]
     Indication: PARKINSON'S DISEASE
     Dosage: 700 MG, DAILY
     Route: 048
  2. COMTAN [Suspect]
     Indication: DRUG EFFECT DECREASED
  3. EC DOPARL [Concomitant]
     Indication: PARKINSON'S DISEASE
     Dosage: 700 MG, UNK
     Route: 048

REACTIONS (2)
  - BLOOD PRESSURE DECREASED [None]
  - CEREBRAL ISCHAEMIA [None]
